FAERS Safety Report 8430474-0 (Version None)
Quarter: 2012Q2

REPORT INFORMATION
  Report Type: 
  Country: None (occurrence: None)
  Receive Date: 20120612
  Receipt Date: 20120530
  Transmission Date: 20120825
  Serious: Yes (Other)
  Sender: FDA-Public Use
  Company Number: JP-JNJFOC-20120210038

PATIENT
  Sex: Female

DRUGS (10)
  1. AN UNKNOWN MEDICATION [Concomitant]
     Route: 065
  2. UNSPECIFIED TRANQUILIZERS [Concomitant]
     Route: 065
  3. LYRICA [Concomitant]
     Dosage: 25 MG X 2 PER 1 DAY
     Route: 048
     Dates: start: 20111220, end: 20111221
  4. LYRICA [Concomitant]
     Dosage: 300 MG X 1 PER 1 DAY
     Route: 048
     Dates: start: 20120106, end: 20120101
  5. NORTRIPTYLINE HCL [Concomitant]
     Indication: PAIN
     Dosage: 10 MG X 2 PER 1 DAY
     Route: 048
     Dates: start: 20111226, end: 20120105
  6. DEPAS [Concomitant]
     Indication: PAIN
     Dosage: 0.5 MG X 2 PER 1 DAY
     Route: 048
     Dates: start: 20111226, end: 20120101
  7. TRAMADOL HYDROCHLORIDE AND ACETAMINOPHEN [Suspect]
     Indication: PAIN
     Dosage: 2 DF X 1 PER 1 DAY
     Route: 048
     Dates: start: 20120123, end: 20120127
  8. LYRICA [Concomitant]
     Indication: PAIN
     Dosage: 150 MG X 1 PER 1 DAY
     Route: 048
     Dates: start: 20111222, end: 20120105
  9. PRIMPERAN TAB [Concomitant]
     Indication: PRODUCT USED FOR UNKNOWN INDICATION
     Dosage: ONCE A DAY
     Route: 048
     Dates: start: 20120123, end: 20120127
  10. NORTRIPTYLINE HCL [Concomitant]
     Dosage: 10 MG X 3 PER 1 DAY
     Route: 048
     Dates: start: 20120106, end: 20120101

REACTIONS (4)
  - INCONTINENCE [None]
  - NAUSEA [None]
  - RHABDOMYOLYSIS [None]
  - INAPPROPRIATE SCHEDULE OF DRUG ADMINISTRATION [None]
